FAERS Safety Report 9937850 (Version 1)
Quarter: 2014Q1

REPORT INFORMATION
  Report Type: Spontaneous
  Country: US (occurrence: US)
  Receive Date: 20140303
  Receipt Date: 20140303
  Transmission Date: 20141002
  Serious: No
  Sender: FDA-Public Use
  Company Number: US-BIOGENIDEC-2014BI016447

PATIENT
  Sex: Female

DRUGS (2)
  1. TECFIDERA [Suspect]
     Indication: MULTIPLE SCLEROSIS
     Route: 048
     Dates: start: 20130910, end: 20140116
  2. COPAXONE [Concomitant]

REACTIONS (4)
  - Urticaria [Unknown]
  - Swelling face [Unknown]
  - Skin burning sensation [Unknown]
  - Pruritus [Unknown]
